FAERS Safety Report 12437575 (Version 1)
Quarter: 2016Q2

REPORT INFORMATION
  Report Type: Spontaneous
  Country: US (occurrence: None)
  Receive Date: 20160603
  Receipt Date: 20160603
  Transmission Date: 20160815
  Serious: Yes (Death, Hospitalization)
  Sender: FDA-Public Use
  Company Number: None

PATIENT
  Age: 64 Year
  Sex: Female
  Weight: 94.8 kg

DRUGS (1)
  1. TEMOZOLOMIDE. [Suspect]
     Active Substance: TEMOZOLOMIDE
     Dates: end: 20160525

REACTIONS (5)
  - Nausea [None]
  - Pulmonary embolism [None]
  - Deep vein thrombosis [None]
  - Back pain [None]
  - Hypoxia [None]

NARRATIVE: CASE EVENT DATE: 20160526
